FAERS Safety Report 5517385-5 (Version None)
Quarter: 2007Q4

REPORT INFORMATION
  Report Type: 
  Country: None (occurrence: None)
  Receive Date: 20071114
  Receipt Date: 20071107
  Transmission Date: 20080405
  Serious: Yes (Life-Threatening, Hospitalization)
  Sender: FDA-Public Use
  Company Number: AU-AVENTIS-200720310GDDC

PATIENT
  Age: 83 Year
  Sex: Female

DRUGS (5)
  1. ARAVA [Suspect]
     Indication: RHEUMATOID ARTHRITIS
     Route: 048
     Dates: start: 20050823
  2. METHOTREXATE [Concomitant]
     Dosage: DOSE: UNK
  3. MEGAFOL [Concomitant]
     Dosage: DOSE: UNK
  4. PREDNISOLONE [Concomitant]
     Dosage: DOSE: UNK
  5. NATRILIX                           /00340101/ [Concomitant]
     Dosage: DOSE: UNK

REACTIONS (4)
  - DYSPNOEA [None]
  - FATIGUE [None]
  - MUSCULOSKELETAL PAIN [None]
  - MYOCARDIAL INFARCTION [None]
